FAERS Safety Report 9678817 (Version 1)
Quarter: 2013Q4

REPORT INFORMATION
  Report Type: Spontaneous
  Country: US (occurrence: US)
  Receive Date: 20131108
  Receipt Date: 20131108
  Transmission Date: 20140711
  Serious: Yes (Hospitalization)
  Sender: FDA-Public Use
  Company Number: US-GLAXOSMITHKLINE-A1048918A

PATIENT
  Age: 50 Year
  Sex: Female

DRUGS (2)
  1. VENTOLIN [Suspect]
     Indication: RESPIRATORY DISORDER
     Dates: start: 20111121
  2. ADVAIR [Suspect]
     Indication: RESPIRATORY DISORDER
     Route: 055
     Dates: start: 20111121

REACTIONS (1)
  - Investigation [Unknown]
